FAERS Safety Report 9768085 (Version 2)
Quarter: 2014Q1

REPORT INFORMATION
  Report Type: Report from Study
  Country: US (occurrence: US)
  Receive Date: 20131217
  Receipt Date: 20140221
  Transmission Date: 20141002
  Serious: Yes (Other)
  Sender: FDA-Public Use
  Company Number: US-GLAXOSMITHKLINE-A0917237F

PATIENT
  Age: 71 Year
  Sex: Male
  Weight: 126.3 kg

DRUGS (2)
  1. DABRAFENIB [Suspect]
     Indication: METASTATIC MALIGNANT MELANOMA
     Dosage: 150MG TWICE PER DAY
     Route: 048
     Dates: start: 20101119
  2. TRAMETINIB [Suspect]
     Indication: METASTATIC MALIGNANT MELANOMA
     Dosage: 1MG PER DAY
     Route: 048
     Dates: start: 20101119

REACTIONS (1)
  - Cerebral sarcoidosis [Not Recovered/Not Resolved]
